FAERS Safety Report 10090490 (Version 11)
Quarter: 2020Q1

REPORT INFORMATION
  Report Type: Report from Study
  Country: US (occurrence: US)
  Receive Date: 20140421
  Receipt Date: 20200225
  Transmission Date: 20200409
  Serious: Yes (Other)
  Sender: FDA-Public Use
  Company Number: PHHY2014US043740

PATIENT
  Age: 46 Year
  Sex: Female
  Weight: 56.8 kg

DRUGS (10)
  1. TRANDATE [Concomitant]
     Active Substance: LABETALOL HYDROCHLORIDE
     Indication: PROPHYLAXIS
     Route: 065
     Dates: start: 20130110, end: 20130117
  2. ENOXAPARIN [Concomitant]
     Active Substance: ENOXAPARIN
     Indication: THROMBOSIS PROPHYLAXIS
     Route: 065
     Dates: start: 20121120, end: 20121130
  3. LOVENOX [Concomitant]
     Active Substance: ENOXAPARIN SODIUM
     Indication: THROMBOSIS PROPHYLAXIS
     Dosage: UNK
     Route: 065
     Dates: start: 20130110, end: 20130117
  4. VIMPAT [Concomitant]
     Active Substance: LACOSAMIDE
     Indication: PRODUCT USED FOR UNKNOWN INDICATION
     Dosage: 100 MG, BID
     Route: 065
     Dates: start: 20140401
  5. BISACODYL. [Concomitant]
     Active Substance: BISACODYL
     Indication: CONSTIPATION PROPHYLAXIS
     Dosage: UNK
     Route: 065
     Dates: start: 20121121, end: 20121130
  6. GILENYA [Suspect]
     Active Substance: FINGOLIMOD HYDROCHLORIDE
     Indication: MULTIPLE SCLEROSIS
     Dosage: 0.5 MG, QD
     Route: 048
     Dates: start: 20120301
  7. ZALEPLON. [Concomitant]
     Active Substance: ZALEPLON
     Indication: POOR QUALITY SLEEP
     Dosage: 5 MG, QHS
     Route: 048
     Dates: start: 20140101
  8. COLACE [Concomitant]
     Active Substance: DOCUSATE SODIUM
     Indication: CONSTIPATION PROPHYLAXIS
     Route: 065
     Dates: start: 20130110, end: 20130117
  9. CATAPRES [Concomitant]
     Active Substance: CLONIDINE HYDROCHLORIDE
     Indication: PROPHYLAXIS
     Route: 065
     Dates: start: 20130110, end: 20130117
  10. VASOTEC [Concomitant]
     Active Substance: ENALAPRIL MALEATE
     Indication: PROPHYLAXIS
     Route: 065
     Dates: start: 20130110, end: 20130117

REACTIONS (12)
  - Cerebral small vessel ischaemic disease [Unknown]
  - Chest X-ray abnormal [Unknown]
  - Cerebral ventricle dilatation [Unknown]
  - Red blood cell count decreased [Unknown]
  - Anion gap decreased [Unknown]
  - Encephalomalacia [Unknown]
  - Cataract [Not Recovered/Not Resolved]
  - Platelet count decreased [Unknown]
  - Mean cell haemoglobin increased [Unknown]
  - Mean cell volume increased [Unknown]
  - Cerebral atrophy [Unknown]
  - Encephalopathy [Recovered/Resolved]

NARRATIVE: CASE EVENT DATE: 20120702
